FAERS Safety Report 10843520 (Version 1)
Quarter: 2015Q1

REPORT INFORMATION
  Report Type: Report from Study
  Country: US (occurrence: US)
  Receive Date: 20150220
  Receipt Date: 20150220
  Transmission Date: 20150721
  Serious: Yes (Hospitalization, Other)
  Sender: FDA-Public Use
  Company Number: US-ABBVIE-14P-163-1258160-00

PATIENT
  Age: 55 Year
  Sex: Female

DRUGS (6)
  1. HUMIRA [Suspect]
     Active Substance: ADALIMUMAB
     Indication: CROHN^S DISEASE
     Dates: start: 201310
  2. VITAMINS NOS [Concomitant]
     Active Substance: VITAMINS
     Indication: PRODUCT USED FOR UNKNOWN INDICATION
  3. VITAMIN D [Concomitant]
     Active Substance: CHOLECALCIFEROL
     Indication: PRODUCT USED FOR UNKNOWN INDICATION
  4. ATIVAN [Concomitant]
     Active Substance: LORAZEPAM
     Indication: STRESS
  5. PROZAC [Concomitant]
     Active Substance: FLUOXETINE HYDROCHLORIDE
     Indication: PRODUCT USED FOR UNKNOWN INDICATION
  6. TRAZODONE [Concomitant]
     Active Substance: TRAZODONE HYDROCHLORIDE
     Indication: PRODUCT USED FOR UNKNOWN INDICATION
     Dosage: EVERY NIGHT

REACTIONS (12)
  - Fungal infection [Not Recovered/Not Resolved]
  - Abscess [Not Recovered/Not Resolved]
  - Incorrect dose administered [Recovered/Resolved]
  - Incorrect dose administered [Recovered/Resolved]
  - Infected fistula [Not Recovered/Not Resolved]
  - Injection site pain [Not Recovered/Not Resolved]
  - Injection site extravasation [Recovered/Resolved]
  - Abdominal pain upper [Unknown]
  - Wrong technique in drug usage process [Recovered/Resolved]
  - Wrong technique in drug usage process [Recovered/Resolved]
  - Onychomycosis [Not Recovered/Not Resolved]
  - Injection site extravasation [Recovered/Resolved]

NARRATIVE: CASE EVENT DATE: 201310
